FAERS Safety Report 17618189 (Version 1)
Quarter: 2020Q2

REPORT INFORMATION
  Report Type: Spontaneous
  Country: US (occurrence: US)
  Receive Date: 20200402
  Receipt Date: 20200402
  Transmission Date: 20200713
  Serious: No
  Sender: FDA-Public Use
  Company Number: US-ROCHE-2432099

PATIENT
  Sex: Female

DRUGS (7)
  1. HYDROCHLOROTH [Concomitant]
     Active Substance: HYDROCHLOROTHIAZIDE
     Route: 065
  2. VITAMIN D3 [Concomitant]
     Active Substance: CHOLECALCIFEROL
     Route: 065
  3. ERIVEDGE [Suspect]
     Active Substance: VISMODEGIB
     Indication: METASTASES TO LUNG
     Route: 048
     Dates: start: 20180313
  4. LOMOTIL [Concomitant]
     Active Substance: ATROPINE SULFATE\DIPHENOXYLATE HYDROCHLORIDE
     Route: 065
  5. POTASSIUM [Concomitant]
     Active Substance: POTASSIUM
     Route: 065
  6. MIRTAZAPINE. [Concomitant]
     Active Substance: MIRTAZAPINE
     Route: 065
  7. REMERON [Concomitant]
     Active Substance: MIRTAZAPINE
     Route: 065

REACTIONS (1)
  - Depression [Unknown]
